FAERS Safety Report 6256069-5 (Version None)
Quarter: 2009Q3

REPORT INFORMATION
  Report Type: 
  Country: None (occurrence: None)
  Receive Date: 20090706
  Receipt Date: 20090623
  Transmission Date: 20100115
  Serious: Yes (Hospitalization)
  Sender: FDA-Public Use
  Company Number: US-CELGENEUS-163-21880-09060231

PATIENT
  Sex: Male

DRUGS (14)
  1. REVLIMID [Suspect]
     Route: 048
     Dates: start: 20090501, end: 20090501
  2. REMERON [Concomitant]
     Indication: DRUG USE FOR UNKNOWN INDICATION
     Route: 065
     Dates: start: 20090320
  3. ONDANSETRON [Concomitant]
     Indication: NAUSEA
     Route: 065
     Dates: start: 20081231
  4. PRILOSEC [Concomitant]
     Indication: GASTRITIS
     Route: 065
     Dates: start: 20090513
  5. ACETAMINOPHEN [Concomitant]
     Indication: PAIN
     Route: 065
     Dates: start: 20081231
  6. ACETAMINOPHEN [Concomitant]
     Indication: BODY TEMPERATURE INCREASED
  7. MULTI-VITAMINS [Concomitant]
     Indication: DRUG USE FOR UNKNOWN INDICATION
     Route: 048
     Dates: start: 20081211
  8. LORAZEPAM [Concomitant]
     Indication: NAUSEA
     Route: 048
     Dates: start: 20090513
  9. LORAZEPAM [Concomitant]
     Indication: ANXIETY
  10. MARINOL [Concomitant]
     Indication: DRUG USE FOR UNKNOWN INDICATION
     Route: 065
     Dates: start: 20090526, end: 20090623
  11. MARINOL [Concomitant]
     Dosage: 1-2
     Route: 065
     Dates: start: 20090529
  12. MARINOL [Concomitant]
     Dosage: 1-2
     Route: 065
     Dates: start: 20090529
  13. DILAUDID [Concomitant]
     Indication: PAIN
     Route: 065
     Dates: start: 20090617
  14. DEXAMETHASONE [Concomitant]
     Indication: CHEMOTHERAPY
     Route: 065

REACTIONS (2)
  - JAUNDICE [None]
  - LIVER FUNCTION TEST ABNORMAL [None]
